FAERS Safety Report 6569766-9 (Version None)
Quarter: 2010Q1

REPORT INFORMATION
  Report Type: 
  Country: None (occurrence: None)
  Receive Date: 20100204
  Receipt Date: 20100126
  Transmission Date: 20100710
  Serious: Yes (Other)
  Sender: FDA-Public Use
  Company Number: US-KINGPHARMUSA00001-K201000101

PATIENT
  Sex: Male
  Weight: 95.238 kg

DRUGS (2)
  1. FLECTOR [Suspect]
     Indication: TENDON INJURY
     Dosage: 1 PATCH, QD FOR 12 HOURS
     Dates: start: 20090101, end: 20091201
  2. VITAMINS NOS [Concomitant]
     Indication: SUPPLEMENTATION THERAPY

REACTIONS (5)
  - ACUTE MYOCARDIAL INFARCTION [None]
  - ANXIETY [None]
  - ASTHENIA [None]
  - CHEST PAIN [None]
  - CORONARY ARTERY DISEASE [None]
